FAERS Safety Report 6972439-1 (Version None)
Quarter: 2010Q3

REPORT INFORMATION
  Report Type: 
  Country: None (occurrence: None)
  Receive Date: 20100909
  Receipt Date: 20100826
  Transmission Date: 20110219
  Serious: Yes (Hospitalization)
  Sender: FDA-Public Use
  Company Number: PHHY2010FR56715

PATIENT
  Age: 80 Year
  Sex: Female

DRUGS (7)
  1. RASILEZ [Suspect]
     Indication: HYPERTENSION
     Dosage: 300 MG, QD
     Route: 048
     Dates: start: 20100727, end: 20100805
  2. IPERTEN [Suspect]
     Indication: HYPERTENSION
     Dosage: 10 MG, QD
     Route: 048
     Dates: start: 20100727, end: 20100805
  3. CELLCEPT [Suspect]
     Indication: LEWIS-SUMNER SYNDROME
     Dosage: 2 G DAILY
     Dates: start: 20100601, end: 20100805
  4. KARDEGIC [Concomitant]
  5. PRAVASTATIN [Concomitant]
  6. PRIVIGEN [Concomitant]
  7. FOSAVANCE [Concomitant]

REACTIONS (6)
  - CONFUSIONAL STATE [None]
  - HYPOKALAEMIA [None]
  - HYPONATRAEMIA [None]
  - MOTOR DYSFUNCTION [None]
  - NEUROLOGICAL DECOMPENSATION [None]
  - VIITH NERVE PARALYSIS [None]
